FAERS Safety Report 4420987-0 (Version None)
Quarter: 2004Q3

REPORT INFORMATION
  Report Type: 
  Country: None (occurrence: None)
  Receive Date: 20040803
  Receipt Date: 20040720
  Transmission Date: 20050211
  Serious: Yes (Other)
  Sender: FDA-Public Use
  Company Number: 207893

PATIENT
  Age: 74 Year
  Sex: Male
  Weight: 118.8 kg

DRUGS (7)
  1. AVASTIN [Suspect]
     Indication: COLORECTAL CANCER METASTATIC
     Dosage: 585 MG, Q2W, INTRAVENOUS
     Route: 042
     Dates: start: 20040602, end: 20040629
  2. FLUOROURACIL [Concomitant]
  3. LEUCOVORIN CALCIUM [Concomitant]
  4. OXALIPLATIN (OXALIPLATIN) [Concomitant]
  5. MAXZIDE [Concomitant]
  6. TOPROL-XL [Concomitant]
  7. COUMADIN [Concomitant]

REACTIONS (3)
  - BLOOD CREATININE INCREASED [None]
  - BLOOD PRESSURE SYSTOLIC INCREASED [None]
  - RENAL CYST [None]
